FAERS Safety Report 4706384-9 (Version None)
Quarter: 2005Q3

REPORT INFORMATION
  Report Type: 
  Country: None (occurrence: None)
  Receive Date: 20050705
  Receipt Date: 20050530
  Transmission Date: 20060218
  Serious: Yes (Hospitalization)
  Sender: FDA-Public Use
  Company Number: 2005AP03477

PATIENT
  Age: 862 Month
  Sex: Male

DRUGS (10)
  1. CASODEX [Suspect]
     Indication: PROSTATE CANCER
     Route: 048
     Dates: start: 20050407, end: 20050516
  2. BLOPRESS [Suspect]
     Route: 048
     Dates: start: 20041210, end: 20050510
  3. LASIX [Concomitant]
     Route: 048
     Dates: start: 20010511
  4. ACINON [Concomitant]
     Route: 048
     Dates: start: 20010511
  5. ASPIRIN [Concomitant]
     Route: 048
     Dates: start: 20041210, end: 20050425
  6. ANCARON [Concomitant]
     Route: 048
     Dates: start: 20041210
  7. SUNRYTHM [Concomitant]
     Route: 048
     Dates: start: 20041210
  8. MAGNESIUM OXIDE [Concomitant]
     Route: 048
     Dates: start: 20041210
  9. FLOMAX [Concomitant]
     Route: 048
     Dates: start: 20050407, end: 20050511
  10. LEUPLIN SR [Concomitant]
     Indication: PROSTATE CANCER
     Dates: start: 20031201

REACTIONS (1)
  - HYPONATRAEMIA [None]
